FAERS Safety Report 10467313 (Version 3)
Quarter: 2015Q2

REPORT INFORMATION
  Report Type: Spontaneous
  Country: US (occurrence: US)
  Receive Date: 20140922
  Receipt Date: 20150401
  Transmission Date: 20150821
  Serious: Yes (Death, Hospitalization, Other)
  Sender: FDA-Public Use
  Company Number: US-009507513-1409USA009864

PATIENT
  Sex: Female
  Weight: 81.63 kg

DRUGS (1)
  1. JANUVIA [Suspect]
     Active Substance: SITAGLIPTIN PHOSPHATE
     Indication: TYPE 2 DIABETES MELLITUS
     Dosage: 100 MG, QD
     Route: 048
     Dates: start: 20090605, end: 20110802

REACTIONS (22)
  - Pancreatic carcinoma [Fatal]
  - Hepatic steatosis [Unknown]
  - Cholelithiasis [Unknown]
  - Hyperlipidaemia [Unknown]
  - Asthma [Unknown]
  - Metastases to lymph nodes [Unknown]
  - Abdominal hernia [Unknown]
  - Chondroplasty [Unknown]
  - Aortic arteriosclerosis [Unknown]
  - Pancreaticoduodenectomy [Unknown]
  - Hepatectomy [Unknown]
  - Mesenteric neoplasm [Unknown]
  - Osteoarthritis [Unknown]
  - Thrombocytopenia [Unknown]
  - Metastases to liver [Unknown]
  - Ascites [Unknown]
  - Pneumobilia [Unknown]
  - Metastatic neoplasm [Unknown]
  - Hypertension [Unknown]
  - Hypothyroidism [Unknown]
  - Radiotherapy [Unknown]
  - Neuropathy peripheral [Unknown]

NARRATIVE: CASE EVENT DATE: 20110804
